FAERS Safety Report 12684276 (Version 1)
Quarter: 2016Q3

REPORT INFORMATION
  Report Type: Spontaneous
  Country: US (occurrence: US)
  Receive Date: 20160825
  Receipt Date: 20160825
  Transmission Date: 20161109
  Serious: No
  Sender: FDA-Public Use
  Company Number: US-BEH-2016072694

PATIENT
  Age: 37 Year
  Sex: Female

DRUGS (1)
  1. HIZENTRA [Suspect]
     Active Substance: HUMAN IMMUNOGLOBULIN G
     Indication: IMMUNODEFICIENCY
     Dosage: 10 G, QW
     Route: 058
     Dates: start: 201606, end: 20160704

REACTIONS (2)
  - Sinusitis [Unknown]
  - Ear infection [Unknown]

NARRATIVE: CASE EVENT DATE: 201606
